FAERS Safety Report 8221225-3 (Version None)
Quarter: 2012Q1

REPORT INFORMATION
  Report Type: 
  Country: None (occurrence: None)
  Receive Date: 20120320
  Receipt Date: 20120305
  Transmission Date: 20120608
  Serious: Yes (Other)
  Sender: FDA-Public Use
  Company Number: PHHY2012JP020441

PATIENT
  Age: 49 Year
  Sex: Female

DRUGS (1)
  1. CYCLOSPORINE [Suspect]
     Dosage: UNK UKN, UNK

REACTIONS (2)
  - CYTOMEGALOVIRUS INFECTION [None]
  - SKIN GRAFT REJECTION [None]
